FAERS Safety Report 16582453 (Version 2)
Quarter: 2019Q3

REPORT INFORMATION
  Report Type: Spontaneous
  Country: FR (occurrence: FR)
  Receive Date: 20190717
  Receipt Date: 20190722
  Transmission Date: 20191004
  Serious: No
  Sender: FDA-Public Use
  Company Number: FR-SA-2019SA188901

PATIENT
  Age: 72 Year
  Sex: Male

DRUGS (7)
  1. CALCIUM CHLORIDE. [Concomitant]
     Active Substance: CALCIUM CHLORIDE
  2. LEVOTHYROXINE SODIUM. [Interacting]
     Active Substance: LEVOTHYROXINE SODIUM
     Indication: HYPOTHYROIDISM
     Route: 048
  3. ESOMEPRAZOLE. [Concomitant]
     Active Substance: ESOMEPRAZOLE MAGNESIUM
  4. CAPRELSA [Suspect]
     Active Substance: VANDETANIB
     Indication: MEDULLARY THYROID CANCER
     Dosage: 300 MG, QD
     Route: 048
     Dates: start: 20190425, end: 20190521
  5. RAMIPRIL. [Concomitant]
     Active Substance: RAMIPRIL
  6. LYSANXIA [Concomitant]
     Active Substance: PRAZEPAM
  7. TIORFANOR [Concomitant]
     Active Substance: RACECADOTRIL

REACTIONS (7)
  - Fatigue [Unknown]
  - Hypothyroidism [Not Recovered/Not Resolved]
  - Drug interaction [Not Recovered/Not Resolved]
  - Myalgia [Not Recovered/Not Resolved]
  - Diarrhoea [Not Recovered/Not Resolved]
  - Decreased appetite [Not Recovered/Not Resolved]
  - Weight decreased [Not Recovered/Not Resolved]

NARRATIVE: CASE EVENT DATE: 201905
